FAERS Safety Report 6248366-4 (Version None)
Quarter: 2009Q2

REPORT INFORMATION
  Report Type: 
  Country: None (occurrence: None)
  Receive Date: 20090629
  Receipt Date: 20090618
  Transmission Date: 20091009
  Serious: Yes (Other)
  Sender: FDA-Public Use
  Company Number: PHHY2009JP15517

PATIENT
  Sex: Female
  Weight: 52 kg

DRUGS (13)
  1. DIOVAN T30230+TAB+HY [Suspect]
     Dosage: 80 MG, QD
     Route: 048
     Dates: start: 20071030, end: 20071130
  2. DIOVAN T30230+TAB+HY [Suspect]
     Dosage: 160 MG, QD
     Route: 048
     Dates: start: 20071201
  3. OLMETEC [Concomitant]
     Indication: HYPERTENSION
     Dosage: UNK
     Route: 048
     Dates: start: 20071003, end: 20071029
  4. EPLERENONE [Concomitant]
     Indication: HYPERTENSION
     Dosage: UNK
     Route: 048
     Dates: start: 20071117
  5. CONIEL [Concomitant]
     Indication: HYPERTENSION
     Dosage: 4 MG
     Route: 048
     Dates: start: 20071229
  6. CONIEL [Concomitant]
     Dosage: 6 MG
     Route: 048
  7. CONIEL [Concomitant]
     Dosage: 8 MG
     Route: 048
  8. OMEPRAL [Concomitant]
     Dosage: 1 DF
     Route: 048
     Dates: start: 20071009, end: 20080123
  9. FUROSEMIDE INTENSOL [Concomitant]
     Dosage: UNK
     Route: 048
     Dates: start: 20071007
  10. ASPIRIN [Concomitant]
     Dosage: 1 DF
     Route: 048
     Dates: start: 20071007
  11. GASTER D [Concomitant]
     Dosage: UNK
     Route: 048
     Dates: start: 20080124
  12. ALLOPURINOL [Concomitant]
     Dosage: 2 DF
     Route: 048
     Dates: start: 20080207
  13. MUCOSTA [Concomitant]
     Dosage: 3 DF
     Route: 048
     Dates: start: 20080124

REACTIONS (5)
  - BLOOD CREATININE INCREASED [None]
  - BLOOD GLUCOSE INCREASED [None]
  - BLOOD POTASSIUM INCREASED [None]
  - BLOOD UREA INCREASED [None]
  - DEHYDRATION [None]
